FAERS Safety Report 20171193 (Version 1)
Quarter: 2021Q4

REPORT INFORMATION
  Report Type: Spontaneous
  Country: TR (occurrence: TR)
  Receive Date: 20211210
  Receipt Date: 20211210
  Transmission Date: 20220304
  Serious: Yes (Hospitalization, Other)
  Sender: FDA-Public Use
  Company Number: TR-GLAXOSMITHKLINE-TR2021GSK251569

PATIENT
  Age: 36 Year
  Sex: Male

DRUGS (7)
  1. BUPROPION [Suspect]
     Active Substance: BUPROPION
     Indication: Ex-tobacco user
     Dosage: 300 MG, 1D
     Route: 048
  2. BUPROPION [Suspect]
     Active Substance: BUPROPION
     Indication: Nicotine dependence
     Dosage: 450-750 MG, 1D
     Route: 048
  3. BUPROPION [Suspect]
     Active Substance: BUPROPION
     Dosage: 750-1500 MG AT A TIME
     Route: 048
  4. BUPROPION [Suspect]
     Active Substance: BUPROPION
     Dosage: 150 MG, 15 TABLETS
     Route: 048
  5. VENLAFAXINE [Concomitant]
     Active Substance: VENLAFAXINE HYDROCHLORIDE
     Indication: Major depression
     Dosage: 150 MG, 1D
  6. METHYLPHENIDATE [Concomitant]
     Active Substance: METHYLPHENIDATE
     Indication: Major depression
     Dosage: 54 MG
  7. ALPRAZOLAM [Concomitant]
     Active Substance: ALPRAZOLAM
     Indication: Product used for unknown indication
     Dosage: UNK

REACTIONS (22)
  - Substance use disorder [Unknown]
  - Alcohol detoxification [Unknown]
  - Euphoric mood [Unknown]
  - Abstains from recreational drugs [Unknown]
  - Irritability [Unknown]
  - Psychomotor hyperactivity [Unknown]
  - Anxiety [Unknown]
  - Panic attack [Unknown]
  - Insomnia [Unknown]
  - Tremor [Unknown]
  - Hyperhidrosis [Unknown]
  - Flushing [Unknown]
  - Sinus tachycardia [Recovered/Resolved]
  - Palpitations [Unknown]
  - Hypoaesthesia [Unknown]
  - Depersonalisation/derealisation disorder [Unknown]
  - Fear [Unknown]
  - Treatment noncompliance [Unknown]
  - Therapeutic response unexpected [Unknown]
  - Intentional overdose [Unknown]
  - Off label use [Unknown]
  - Intentional product misuse [Unknown]
